FAERS Safety Report 6253437-2 (Version None)
Quarter: 2009Q3

REPORT INFORMATION
  Report Type: 
  Country: None (occurrence: None)
  Receive Date: 20090701
  Receipt Date: 20090619
  Transmission Date: 20100115
  Serious: Yes (Other)
  Sender: FDA-Public Use
  Company Number: IT-SANOFI-SYNTHELABO-A06200900313

PATIENT
  Sex: Male

DRUGS (2)
  1. PREVEX [Concomitant]
     Indication: DRUG USE FOR UNKNOWN INDICATION
     Dosage: UNK
     Route: 048
  2. ZOLPIDEM TARTRATE [Suspect]
     Indication: INSOMNIA
     Route: 048
     Dates: start: 20090610, end: 20090616

REACTIONS (4)
  - DYSARTHRIA [None]
  - PETIT MAL EPILEPSY [None]
  - SOMNOLENCE [None]
  - STARING [None]
